FAERS Safety Report 24943208 (Version 2)
Quarter: 2025Q3

REPORT INFORMATION
  Report Type: Spontaneous
  Country: EU (occurrence: EU)
  Receive Date: 20250207
  Receipt Date: 20250809
  Transmission Date: 20251021
  Serious: Yes (Other)
  Sender: ALEXION PHARMACEUTICALS
  Company Number: EU-ASTRAZENECA-202501EEA029445FR

PATIENT

DRUGS (3)
  1. TAGRISSO [Suspect]
     Active Substance: OSIMERTINIB
     Route: 065
  2. Carbo [Concomitant]
  3. ALIMTA [Concomitant]
     Active Substance: PEMETREXED DISODIUM

REACTIONS (2)
  - Epstein-Barr virus infection reactivation [Unknown]
  - Hepatic cytolysis [Unknown]
